FAERS Safety Report 4742887-9 (Version None)
Quarter: 2005Q3

REPORT INFORMATION
  Report Type: 
  Country: None (occurrence: None)
  Receive Date: 20050810
  Receipt Date: 20050810
  Transmission Date: 20060218
  Serious: No
  Sender: FDA-Public Use
  Company Number: None

PATIENT
  Age: 68 Year
  Sex: Male

DRUGS (11)
  1. ABILIFY [Suspect]
     Indication: BIPOLAR DISORDER
     Dosage: TID      ORAL
     Route: 048
     Dates: start: 20050309, end: 20050707
  2. DEPAKOTE ER [Concomitant]
  3. POTASSIUM CHLORIDE [Concomitant]
  4. FUROSEMIDE [Concomitant]
  5. LIPITOR [Concomitant]
  6. MANGANESE TABLET [Concomitant]
  7. MASONEX [Concomitant]
  8. MUCINEX [Concomitant]
  9. NIACIN [Concomitant]
  10. VITAMINS E AND C [Concomitant]
  11. LEVITRA [Concomitant]

REACTIONS (1)
  - VASCULITIS [None]
